FAERS Safety Report 21524769 (Version 2)
Quarter: 2024Q4

REPORT INFORMATION
  Report Type: Spontaneous
  Country: US (occurrence: US)
  Receive Date: 20221030
  Receipt Date: 20241105
  Transmission Date: 20250115
  Serious: Yes (Hospitalization, Other)
  Sender: JOHNSON AND JOHNSON
  Company Number: US-JNJFOC-20221049930

PATIENT
  Age: 74 Year
  Sex: Female

DRUGS (7)
  1. XARELTO [Suspect]
     Active Substance: RIVAROXABAN
     Indication: Thrombosis
     Route: 048
  2. XARELTO [Suspect]
     Active Substance: RIVAROXABAN
     Indication: Pulmonary thrombosis
  3. IBRANCE [Suspect]
     Active Substance: PALBOCICLIB
     Indication: Breast cancer metastatic
     Dosage: 75 MG 3X7 UD TAB 21
     Route: 065
  4. IBRANCE [Suspect]
     Active Substance: PALBOCICLIB
     Dosage: CYCLIC(21 DAYS ON, FOLLOWED BY 14 DAYS OFF EVERY 5 WEEKS/ 3 WEEKS ON FOLLOWED BY 2 WEEKS OFF)
     Route: 065
     Dates: start: 2020
  5. IBRANCE [Suspect]
     Active Substance: PALBOCICLIB
     Dosage: 3X7 UD TAB 21
     Route: 065
  6. IBRANCE [Suspect]
     Active Substance: PALBOCICLIB
     Dosage: CYCLIC( 75 MG, PO DAILY 3 WEEKS ON 2 WEEKS OFF, REPEAT EVERY 5 WEEKS)
     Route: 048
  7. IBRANCE [Suspect]
     Active Substance: PALBOCICLIB
     Dosage: TAKE ONE TABLET 75MG DAILY FOR 21 DAYS FOLLOWED BY 14 DAYS OFF
     Route: 048

REACTIONS (16)
  - Thrombosis [Unknown]
  - Pulmonary embolism [Unknown]
  - Nephrolithiasis [Unknown]
  - Fall [Unknown]
  - Balance disorder [Unknown]
  - Drug hypersensitivity [Not Recovered/Not Resolved]
  - Illness [Unknown]
  - Dyspnoea [Not Recovered/Not Resolved]
  - Abdominal discomfort [Unknown]
  - Weight fluctuation [Unknown]
  - Depressed mood [Unknown]
  - Joint dislocation [Unknown]
  - Nausea [Unknown]
  - Neoplasm progression [Unknown]
  - Product use issue [Unknown]
  - Off label use [Unknown]

NARRATIVE: CASE EVENT DATE: 20200101
